FAERS Safety Report 4653005-X (Version None)
Quarter: 2005Q2

REPORT INFORMATION
  Report Type: 
  Country: None (occurrence: None)
  Receive Date: 20050502
  Receipt Date: 20050502
  Transmission Date: 20051028
  Serious: Yes (Other)
  Sender: FDA-Public Use
  Company Number: None

PATIENT
  Age: 72 Year
  Sex: Male
  Weight: 67.3 kg

DRUGS (6)
  1. TRAVOPROST [Suspect]
  2. BRIMONIDINE TARTRATE [Concomitant]
  3. DORZOLAMIDE [Concomitant]
  4. TRAVOPROST [Concomitant]
  5. BRIMONIDINE TARTRATE [Concomitant]
  6. PILOCARPINE HCL [Concomitant]

REACTIONS (2)
  - EYE PAIN [None]
  - OCULAR HYPERAEMIA [None]
